FAERS Safety Report 16016264 (Version 1)
Quarter: 2019Q1

REPORT INFORMATION
  Report Type: Spontaneous
  Country: US (occurrence: US)
  Receive Date: 20190227
  Receipt Date: 20190227
  Transmission Date: 20190418
  Serious: Yes (Hospitalization)
  Sender: FDA-Public Use
  Company Number: None

PATIENT
  Age: 50 Year
  Sex: Female

DRUGS (4)
  1. FLUOXETINE [Concomitant]
     Active Substance: FLUOXETINE HYDROCHLORIDE
  2. LISINOPRIL 10MG [Concomitant]
     Active Substance: LISINOPRIL
  3. EXEMESTANE. [Suspect]
     Active Substance: EXEMESTANE
     Indication: BREAST CANCER
     Route: 048
     Dates: start: 20180707, end: 20190227
  4. LORAZEPAM 0.5MG [Concomitant]
     Active Substance: LORAZEPAM

REACTIONS (4)
  - Headache [None]
  - Fatigue [None]
  - Dizziness [None]
  - Constipation [None]
